FAERS Safety Report 14820699 (Version 1)
Quarter: 2018Q2

REPORT INFORMATION
  Report Type: Spontaneous
  Country: FR (occurrence: FR)
  Receive Date: 20180427
  Receipt Date: 20180427
  Transmission Date: 20180711
  Serious: Yes (Other)
  Sender: FDA-Public Use
  Company Number: FR-MERCK KGAA-2046736

PATIENT
  Sex: Female

DRUGS (1)
  1. NOVOTHYROX [Suspect]
     Active Substance: LEVOTHYROXINE SODIUM
     Indication: POST PROCEDURAL HYPOTHYROIDISM

REACTIONS (18)
  - Arthralgia [None]
  - General physical health deterioration [None]
  - Fear of falling [None]
  - Tremor [None]
  - Gastrooesophageal reflux disease [None]
  - Constipation [None]
  - Middle insomnia [None]
  - Fatigue [None]
  - Loss of personal independence in daily activities [None]
  - Depression [None]
  - Abdominal pain [None]
  - Muscle spasms [None]
  - Vertigo [None]
  - Dyspepsia [None]
  - Feeling abnormal [None]
  - Pain [None]
  - Social avoidant behaviour [None]
  - Insomnia [None]
